FAERS Safety Report 6335030-6 (Version None)
Quarter: 2009Q3

REPORT INFORMATION
  Report Type: 
  Country: None (occurrence: None)
  Receive Date: 20090831
  Receipt Date: 20090820
  Transmission Date: 20100115
  Serious: Yes (Hospitalization)
  Sender: FDA-Public Use
  Company Number: AU-AMGEN-QUU351080

PATIENT
  Sex: Female
  Weight: 66 kg

DRUGS (5)
  1. NEULASTA [Suspect]
     Indication: CHEMOTHERAPY
     Route: 058
     Dates: start: 20090319, end: 20090529
  2. NEUPOGEN [Suspect]
     Indication: CHEMOTHERAPY
     Route: 065
  3. TAXOTERE [Concomitant]
     Dates: start: 20090225
  4. CARBOPLATIN [Concomitant]
     Dates: start: 20090225
  5. HERCEPTIN [Concomitant]
     Dates: start: 20090225

REACTIONS (2)
  - FEBRILE NEUTROPENIA [None]
  - NEUTROPENIA [None]
